FAERS Safety Report 13734533 (Version 1)
Quarter: 2017Q3

REPORT INFORMATION
  Report Type: Spontaneous
  Country: US (occurrence: US)
  Receive Date: 20170709
  Receipt Date: 20170709
  Transmission Date: 20171127
  Serious: No
  Sender: FDA-Public Use
  Company Number: US-TEVA-783728USA

PATIENT
  Sex: Male

DRUGS (1)
  1. COPAXONE [Suspect]
     Active Substance: GLATIRAMER ACETATE
     Indication: MULTIPLE SCLEROSIS
     Dosage: UNKNOWN FORM STRENGTH
     Route: 065

REACTIONS (5)
  - Injection site rash [Unknown]
  - Dizziness [Unknown]
  - Hypersensitivity [Unknown]
  - Injection site urticaria [Unknown]
  - Hyperhidrosis [Unknown]
